FAERS Safety Report 16108612 (Version 2)
Quarter: 2019Q2

REPORT INFORMATION
  Report Type: Spontaneous
  Country: AU (occurrence: AU)
  Receive Date: 20190323
  Receipt Date: 20190411
  Transmission Date: 20190711
  Serious: Yes (Other)
  Sender: FDA-Public Use
  Company Number: AU-ACCORD-111696

PATIENT
  Sex: Male

DRUGS (3)
  1. MONTELUKAST [Suspect]
     Active Substance: MONTELUKAST SODIUM
     Indication: IDIOPATHIC ANGIOEDEMA
     Route: 048
     Dates: start: 2017, end: 20190307
  2. METHOTREXATE. [Suspect]
     Active Substance: METHOTREXATE
     Indication: IDIOPATHIC ANGIOEDEMA
     Route: 048
     Dates: start: 20180825, end: 20190307
  3. RANITIDINE. [Suspect]
     Active Substance: RANITIDINE
     Indication: IDIOPATHIC ANGIOEDEMA
     Dates: start: 2017, end: 20190307

REACTIONS (2)
  - Idiopathic angioedema [Not Recovered/Not Resolved]
  - Therapy non-responder [Unknown]
